FAERS Safety Report 9193201 (Version 3)
Quarter: 2013Q2

REPORT INFORMATION
  Report Type: Spontaneous
  Country: JP (occurrence: JP)
  Receive Date: 20130327
  Receipt Date: 20130531
  Transmission Date: 20140414
  Serious: Yes (Other)
  Sender: FDA-Public Use
  Company Number: JP-009507513-1303JPN012508

PATIENT
  Age: 73 Year
  Sex: Female

DRUGS (7)
  1. REFLEX [Suspect]
     Indication: ANTIDEPRESSANT THERAPY
     Dosage: 15 MG DAILY
     Route: 048
     Dates: start: 20130308
  2. FLUVOXAMINE MALEATE [Concomitant]
     Indication: ANTIDEPRESSANT THERAPY
     Dosage: 75 MG, QD
     Route: 048
     Dates: end: 20130307
  3. FLUVOXAMINE MALEATE [Concomitant]
     Dosage: 50 MG, QD
     Route: 048
     Dates: start: 20130308
  4. LORAZEPAM [Concomitant]
     Indication: ANXIOLYTIC THERAPY
     Dosage: 2 MG, QD
     Route: 048
  5. ZOLPIDEM TARTRATE [Concomitant]
     Indication: INSOMNIA
     Dosage: 5 MG, QD
     Route: 048
  6. VALPROATE SODIUM [Concomitant]
     Dosage: 200 MG, QD
     Route: 048
     Dates: start: 20130321
  7. MILNACIPRAN HYDROCHLORIDE [Concomitant]
     Dosage: 25 MG, QD
     Route: 048
     Dates: end: 20130307

REACTIONS (1)
  - Convulsion [Recovered/Resolved]
